FAERS Safety Report 9065730 (Version 1)
Quarter: 2013Q1

REPORT INFORMATION
  Report Type: Report from Study
  Country: US (occurrence: US)
  Receive Date: 20130131
  Receipt Date: 20130131
  Transmission Date: 20140127
  Serious: No
  Sender: FDA-Public Use
  Company Number: US-ABBOTT-12P-163-0979477-00

PATIENT
  Age: 58 Year
  Sex: Male

DRUGS (7)
  1. HUMIRA [Suspect]
     Indication: CROHN^S DISEASE
     Dates: start: 20120816, end: 20120816
  2. HUMIRA [Suspect]
     Dates: start: 20120823, end: 20120823
  3. HUMIRA [Suspect]
     Dates: start: 20120906, end: 20121207
  4. LIALDA [Concomitant]
     Indication: CROHN^S DISEASE
  5. PREDNISONE [Concomitant]
     Indication: PRODUCT USED FOR UNKNOWN INDICATION
     Dosage: WEANING OFF
  6. PREDNISONE [Concomitant]
     Dosage: 10 MG DAILY
  7. LAMISIL [Concomitant]
     Indication: TINEA PEDIS

REACTIONS (5)
  - Pyrexia [Recovered/Resolved]
  - Tinea pedis [Not Recovered/Not Resolved]
  - Intestinal obstruction [Not Recovered/Not Resolved]
  - Drug ineffective [Not Recovered/Not Resolved]
  - Hair texture abnormal [Not Recovered/Not Resolved]
